FAERS Safety Report 15041769 (Version 1)
Quarter: 2018Q2

REPORT INFORMATION
  Report Type: Spontaneous
  Country: US (occurrence: US)
  Receive Date: 20180531
  Receipt Date: 20180531
  Transmission Date: 20180711
  Serious: No
  Sender: FDA-Public Use
  Company Number: None

PATIENT
  Age: 33 Year
  Sex: Female

DRUGS (1)
  1. SYMDEKO [Suspect]
     Active Substance: IVACAFTOR\TEZACAFTOR
     Dates: start: 20180329, end: 20180420

REACTIONS (4)
  - Pyrexia [None]
  - Condition aggravated [None]
  - Cystic fibrosis [None]
  - Malaise [None]

NARRATIVE: CASE EVENT DATE: 20180420
